FAERS Safety Report 7768226-7 (Version None)
Quarter: 2011Q3

REPORT INFORMATION
  Report Type: 
  Country: None (occurrence: None)
  Receive Date: 20110922
  Receipt Date: 20110922
  Transmission Date: 20111222
  Serious: Yes (Other)
  Sender: FDA-Public Use
  Company Number: None

PATIENT
  Age: 56 Year
  Sex: Female
  Weight: 65.77 kg

DRUGS (1)
  1. CLINDAMYCIN [Suspect]
     Indication: ORAL SURGERY
     Dates: start: 20110401, end: 20110411

REACTIONS (3)
  - RASH PRURITIC [None]
  - CLOSTRIDIUM DIFFICILE COLITIS [None]
  - BOWEL MOVEMENT IRREGULARITY [None]
